FAERS Safety Report 23971264 (Version 1)
Quarter: 2024Q2

REPORT INFORMATION
  Report Type: Spontaneous
  Country: CN (occurrence: CN)
  Receive Date: 20240613
  Receipt Date: 20240613
  Transmission Date: 20240716
  Serious: Yes (Other)
  Sender: FDA-Public Use
  Company Number: None

PATIENT
  Age: 58 Year
  Sex: Female
  Weight: 76.6 kg

DRUGS (4)
  1. TRASTUZUMAB [Suspect]
     Active Substance: TRASTUZUMAB
     Indication: Breast cancer
     Dosage: 448 MILLIGRAM, QD, IV DRIP, 150 MILLIGRAM
     Dates: start: 20240522, end: 20240522
  2. ERIBULIN [Suspect]
     Active Substance: ERIBULIN
     Indication: Breast cancer
     Dosage: 2 MILLIGRAM, 2 MONTHS 11 DAYS
     Dates: start: 20240220, end: 20240430
  3. ERIBULIN [Suspect]
     Active Substance: ERIBULIN
     Indication: Breast cancer
     Dosage: 2 MILLIGRAM, QD,  IV DRIP
     Dates: start: 20240522, end: 20240522
  4. TRASTUZUMAB [Suspect]
     Active Substance: TRASTUZUMAB
     Indication: Breast cancer
     Dosage: 448 MILLIGRAM, 150 MILLIGRAM
     Dates: start: 20240220, end: 20240430

REACTIONS (2)
  - Myelosuppression [Unknown]
  - Neurotoxicity [Unknown]

NARRATIVE: CASE EVENT DATE: 20240527
